FAERS Safety Report 8159542-8 (Version None)
Quarter: 2012Q1

REPORT INFORMATION
  Report Type: 
  Country: None (occurrence: None)
  Receive Date: 20120223
  Receipt Date: 20120213
  Transmission Date: 20120608
  Serious: Yes (Hospitalization)
  Sender: FDA-Public Use
  Company Number: JP-ROCHE-1037998

PATIENT
  Sex: Female

DRUGS (2)
  1. TAMIFLU [Suspect]
     Indication: INFLUENZA
     Dosage: DOSAGE IS UNCERTAIN.
     Route: 048
     Dates: start: 20120127, end: 20120128
  2. ACETAMINOPHEN [Concomitant]
     Indication: PYREXIA
     Dosage: TAKEN AS NEEDED.
     Route: 048

REACTIONS (1)
  - HALLUCINATION [None]
